FAERS Safety Report 8216560-9 (Version None)
Quarter: 2012Q1

REPORT INFORMATION
  Report Type: 
  Country: None (occurrence: None)
  Receive Date: 20120314
  Receipt Date: 20120305
  Transmission Date: 20120608
  Serious: Yes (Hospitalization)
  Sender: FDA-Public Use
  Company Number: DKLU1077459

PATIENT
  Age: 78 Year
  Sex: Female

DRUGS (7)
  1. LORMETAZEPAM (LORMETAZEPAM)(1 MG, TABLET) [Suspect]
     Indication: INSOMNIA
     Dosage: 1 MG MILLIGRAM (S), 1 IN 1 D,
     Dates: end: 20120101
  2. ONFI [Suspect]
     Indication: DEPRESSION
     Dosage: 10 MG MILLIGRAM (S), 1 IN 1 D, ORAL
     Route: 048
     Dates: end: 20120101
  3. ACETAMINOPHEN [Concomitant]
  4. LEXOMIL (BROMAZEPAM) (6 MG) [Suspect]
     Indication: DEPRESSION
     Dosage: 6 MG MILLIGRAM (S), 1 IN 1 D, ORAL
     Route: 048
     Dates: end: 20120101
  5. PRAZEPAM [Suspect]
     Indication: DEPRESSION
     Dosage: 10 MG MILLIGRAM (S), 1 IN 1 D, ORAL
     Route: 048
  6. CELECTOL [Concomitant]
  7. IRBESARTAN [Concomitant]

REACTIONS (4)
  - FALL [None]
  - MALAISE [None]
  - RHABDOMYOLYSIS [None]
  - CYTOLYTIC HEPATITIS [None]
